FAERS Safety Report 5413448-3 (Version None)
Quarter: 2007Q3

REPORT INFORMATION
  Report Type: 
  Country: None (occurrence: None)
  Receive Date: 20070809
  Receipt Date: 20070809
  Transmission Date: 20080115
  Serious: Yes (Life-Threatening, Hospitalization, Other)
  Sender: FDA-Public Use
  Company Number: None

PATIENT
  Sex: Female
  Weight: 99.7913 kg

DRUGS (2)
  1. ZOLOFT [Suspect]
     Indication: DEPRESSION
     Dosage: 100MG DAILY PO
     Route: 048
     Dates: start: 20070702, end: 20070802
  2. LEXAPRO [Suspect]
     Indication: DEPRESSION
     Dosage: 10MG DAILY PO
     Route: 048
     Dates: start: 20070802, end: 20070803

REACTIONS (2)
  - CONVULSION [None]
  - SUICIDAL IDEATION [None]
